FAERS Safety Report 4865659-3 (Version None)
Quarter: 2005Q4

REPORT INFORMATION
  Report Type: 
  Country: None (occurrence: None)
  Receive Date: 20051220
  Receipt Date: 20051209
  Transmission Date: 20060501
  Serious: Yes (Hospitalization, Other)
  Sender: FDA-Public Use
  Company Number: 2003006856

PATIENT
  Sex: Male
  Weight: 77.1115 kg

DRUGS (6)
  1. DILANTIN [Suspect]
     Indication: PETIT MAL EPILEPSY
     Dosage: 400 MG (200 MG, TWICE DAILY), ORAL
     Route: 048
     Dates: start: 19800101
  2. CARBATROL [Suspect]
     Indication: CONVULSION
  3. TOPAMAX [Suspect]
     Indication: CONVULSION
  4. PHENOBARBITAL TAB [Suspect]
     Indication: CONVULSION
  5. MYSOLINE [Suspect]
     Indication: CONVULSION
  6. TEGRETOL [Suspect]
     Indication: CONVULSION

REACTIONS (13)
  - CELLULITIS [None]
  - COMPLEX PARTIAL SEIZURES [None]
  - CONVULSION [None]
  - DENTAL CARIES [None]
  - DRUG INEFFECTIVE [None]
  - DRUG TOLERANCE [None]
  - GINGIVAL BLEEDING [None]
  - GINGIVAL PAIN [None]
  - INFECTION [None]
  - PAROTID ABSCESS [None]
  - PHARYNGOLARYNGEAL PAIN [None]
  - STEVENS-JOHNSON SYNDROME [None]
  - SWELLING FACE [None]
